FAERS Safety Report 7288307-4 (Version None)
Quarter: 2011Q1

REPORT INFORMATION
  Report Type: 
  Country: None (occurrence: None)
  Receive Date: 20110208
  Receipt Date: 20110208
  Transmission Date: 20110831
  Serious: No
  Sender: FDA-Public Use
  Company Number: None

PATIENT
  Age: 29 Year
  Sex: Male
  Weight: 68.0396 kg

DRUGS (2)
  1. INTERFERON [Suspect]
  2. RIBAVIRIN [Suspect]

REACTIONS (3)
  - MENTAL IMPAIRMENT [None]
  - FEELING ABNORMAL [None]
  - HEADACHE [None]
